FAERS Safety Report 15016311 (Version 1)
Quarter: 2018Q2

REPORT INFORMATION
  Report Type: Spontaneous
  Country: US (occurrence: US)
  Receive Date: 20180615
  Receipt Date: 20180615
  Transmission Date: 20180711
  Serious: No
  Sender: FDA-Public Use
  Company Number: US-ALLERGAN-1811807US

PATIENT
  Sex: Female

DRUGS (1)
  1. ACZONE [Suspect]
     Active Substance: DAPSONE
     Indication: ACNE CYSTIC
     Dosage: UNK
     Route: 065

REACTIONS (1)
  - Off label use [Unknown]
